FAERS Safety Report 6866454-6 (Version None)
Quarter: 2010Q3

REPORT INFORMATION
  Report Type: 
  Country: None (occurrence: None)
  Receive Date: 20100722
  Receipt Date: 20100719
  Transmission Date: 20110219
  Serious: Yes (Death, Hospitalization)
  Sender: FDA-Public Use
  Company Number: US-BRISTOL-MYERS SQUIBB COMPANY-15201213

PATIENT
  Age: 83 Year
  Sex: Male
  Weight: 87 kg

DRUGS (14)
  1. CISPLATIN [Suspect]
     Indication: NON-SMALL CELL LUNG CANCER
     Route: 042
     Dates: start: 20100315, end: 20100426
  2. ALIMTA [Suspect]
     Indication: NON-SMALL CELL LUNG CANCER
     Dosage: 15MAR10-26APR10 (43D) 02JUN10-UNK DATE
     Route: 042
     Dates: start: 20100315, end: 20100101
  3. RADIATION THERAPY [Suspect]
     Indication: NON-SMALL CELL LUNG CANCER
     Dosage: 1 DOSAGEFORM = 6600 GIVEN OVER 30 TREATMENTS
     Route: 065
     Dates: start: 20100315, end: 20100428
  4. FOLIC ACID [Concomitant]
     Indication: HYPERLIPIDAEMIA
     Dates: start: 20100305
  5. VITAMIN B-12 [Concomitant]
     Indication: HYPERLIPIDAEMIA
     Dates: start: 20100305
  6. DEXAMETHASONE [Concomitant]
     Indication: HYPERLIPIDAEMIA
     Dates: start: 20100314
  7. LEVOTHYROXINE SODIUM [Concomitant]
     Indication: HYPERLIPIDAEMIA
  8. PRAVASTATIN SODIUM [Concomitant]
     Indication: HYPERLIPIDAEMIA
  9. SULAR [Concomitant]
     Indication: HYPERTENSION
  10. FLOMAX [Concomitant]
     Indication: PROSTATOMEGALY
  11. DOCUSATE SODIUM [Concomitant]
     Indication: CHRONIC OBSTRUCTIVE PULMONARY DISEASE
  12. COMBIVENT [Concomitant]
     Indication: CHRONIC OBSTRUCTIVE PULMONARY DISEASE
     Dosage: INHALER
     Route: 055
  13. ASPIRIN [Concomitant]
  14. AMLODIPINE [Concomitant]
     Indication: HYPERTENSION

REACTIONS (3)
  - ACUTE RESPIRATORY FAILURE [None]
  - ASTHENIA [None]
  - ATRIAL FIBRILLATION [None]
